FAERS Safety Report 21951028 (Version 3)
Quarter: 2023Q2

REPORT INFORMATION
  Report Type: Spontaneous
  Country: JP (occurrence: None)
  Receive Date: 20230203
  Receipt Date: 20230424
  Transmission Date: 20230722
  Serious: Yes (Life-Threatening, Hospitalization, Disabling)
  Sender: FDA-Public Use
  Company Number: 2023A027013

PATIENT
  Age: 82 Year
  Sex: Male
  Weight: 52 kg

DRUGS (1)
  1. DAPAGLIFLOZIN [Suspect]
     Active Substance: DAPAGLIFLOZIN
     Indication: Cardiac failure chronic
     Route: 048
     Dates: start: 20220426

REACTIONS (2)
  - Renal impairment [Recovered/Resolved with Sequelae]
  - Emphysematous pyelonephritis [Recovered/Resolved with Sequelae]

NARRATIVE: CASE EVENT DATE: 20221117
